FAERS Safety Report 6181311-9 (Version None)
Quarter: 2009Q2

REPORT INFORMATION
  Report Type: 
  Country: None (occurrence: None)
  Receive Date: 20090504
  Receipt Date: 20090422
  Transmission Date: 20091009
  Serious: Yes (Hospitalization)
  Sender: FDA-Public Use
  Company Number: 005965

PATIENT
  Age: 73 Year
  Sex: Female
  Weight: 80 kg

DRUGS (4)
  1. PLETAL [Suspect]
     Indication: PERIPHERAL ARTERIAL OCCLUSIVE DISEASE
     Dosage: 50 MG, BID , ORAL
     Route: 048
     Dates: start: 20090204, end: 20090219
  2. KARVEZIDE (HYDROCHLOROTHIAZIDE, IRBESARTAN) 300/12.5 MG [Concomitant]
  3. ACETYLSALICYLIC ACID SRT [Concomitant]
  4. GEVILON GFR (GEMFIBROZIL) [Concomitant]

REACTIONS (2)
  - ANAPHYLACTIC SHOCK [None]
  - DERMATITIS ALLERGIC [None]
